FAERS Safety Report 15768034 (Version 1)
Quarter: 2018Q4

REPORT INFORMATION
  Report Type: Report from Study
  Country: JP (occurrence: JP)
  Receive Date: 20181227
  Receipt Date: 20181227
  Transmission Date: 20190205
  Serious: Yes (Life-Threatening, Hospitalization)
  Sender: FDA-Public Use
  Company Number: JP-MYLANLABS-2018M1096769

PATIENT
  Age: 64 Year
  Sex: Female

DRUGS (2)
  1. OLARATUMAB [Suspect]
     Active Substance: OLARATUMAB
     Indication: SOFT TISSUE SARCOMA
     Dosage: ON DAYS 1 AND 8 DURING EACH 21-DAY CYCLE
     Route: 050
  2. DOXORUBICIN [Suspect]
     Active Substance: DOXORUBICIN
     Indication: SOFT TISSUE SARCOMA
     Dosage: ON DAYS 1, 2 AND 3 OF EACH 21-DAY CYCLE (COHORT 1)
     Route: 065

REACTIONS (5)
  - Erythema [Recovered/Resolved]
  - Infusion related reaction [Unknown]
  - Hypotension [Recovered/Resolved]
  - Dyspnoea [Recovered/Resolved]
  - Pruritus generalised [Unknown]
